FAERS Safety Report 13619105 (Version 1)
Quarter: 2017Q2

REPORT INFORMATION
  Report Type: Report from Study
  Country: US (occurrence: US)
  Receive Date: 20170606
  Receipt Date: 20170606
  Transmission Date: 20170830
  Serious: No
  Sender: FDA-Public Use
  Company Number: US-AMGEN-USASL2016103997

PATIENT
  Age: 63 Year
  Sex: Female
  Weight: 97.5 kg

DRUGS (1)
  1. PROCRIT [Suspect]
     Active Substance: ERYTHROPOIETIN
     Indication: APLASTIC ANAEMIA
     Dosage: UNK
     Route: 065

REACTIONS (6)
  - Arthralgia [Not Recovered/Not Resolved]
  - Off label use [Not Recovered/Not Resolved]
  - Vomiting projectile [Recovered/Resolved]
  - Diarrhoea [Recovered/Resolved]
  - Nausea [Not Recovered/Not Resolved]
  - Dyspnoea [Not Recovered/Not Resolved]
